FAERS Safety Report 8398697-7 (Version None)
Quarter: 2012Q2

REPORT INFORMATION
  Report Type: 
  Country: None (occurrence: None)
  Receive Date: 20120531
  Receipt Date: 20120523
  Transmission Date: 20120825
  Serious: Yes (Hospitalization, Other)
  Sender: FDA-Public Use
  Company Number: US-MPIJNJ-2012-03223

PATIENT
  Age: 70 Year
  Sex: Male
  Weight: 95.238 kg

DRUGS (3)
  1. EVEROLIMUS [Suspect]
     Dosage: 5 MG, UNK
     Route: 048
     Dates: start: 20110428, end: 20120427
  2. VELCADE [Suspect]
     Dosage: 1.0 MG/M2, CYCLIC
     Route: 042
     Dates: start: 20110429
  3. RITUXIMAB [Suspect]
     Dosage: 375 MG/M2, CYCLIC
     Route: 042
     Dates: start: 20110429

REACTIONS (2)
  - PULMONARY OEDEMA [None]
  - DEVICE LEAKAGE [None]
